FAERS Safety Report 9233703 (Version 1)
Quarter: 2013Q2

REPORT INFORMATION
  Report Type: Spontaneous
  Country: US (occurrence: US)
  Receive Date: 20130416
  Receipt Date: 20130416
  Transmission Date: 20140414
  Serious: No
  Sender: FDA-Public Use
  Company Number: US-BANPHARM-20130907

PATIENT
  Age: 84 Year
  Sex: Female
  Weight: 65.77 kg

DRUGS (6)
  1. ALEVE LIQUID GELS 220MG [Suspect]
     Indication: PAIN
     Dosage: 1 DF, PRN,
     Route: 048
     Dates: start: 20120404
  2. CLONIDINE [Concomitant]
  3. ATENOLOL [Concomitant]
  4. LOVASTATIN [Concomitant]
  5. AZOR-20 [Concomitant]
  6. BAYER BABY ASPIRIN [Concomitant]

REACTIONS (2)
  - Drug effect incomplete [Unknown]
  - Dyspepsia [Recovered/Resolved]
